FAERS Safety Report 21111088 (Version 1)
Quarter: 2022Q3

REPORT INFORMATION
  Report Type: Spontaneous
  Country: US (occurrence: None)
  Receive Date: 20220720
  Receipt Date: 20220720
  Transmission Date: 20221026
  Serious: Yes (Hospitalization, Disabling, Other)
  Sender: FDA-Public Use
  Company Number: None

PATIENT
  Age: 26 Year
  Sex: Female
  Weight: 103.5 kg

DRUGS (2)
  1. CITROMA MAGNESIUM CITRATE [Suspect]
     Active Substance: MAGNESIUM CITRATE
     Indication: Constipation
     Dates: start: 20220621, end: 20220621
  2. VITAMINS [Concomitant]
     Active Substance: VITAMINS

REACTIONS (7)
  - Abdominal pain upper [None]
  - Muscle spasms [None]
  - Feeding disorder [None]
  - Oesophageal irritation [None]
  - Oesophageal infection [None]
  - Gastrointestinal tract irritation [None]
  - Gastrointestinal infection [None]

NARRATIVE: CASE EVENT DATE: 20220622
